FAERS Safety Report 25247860 (Version 1)
Quarter: 2025Q2

REPORT INFORMATION
  Report Type: Report from Study
  Country: EG (occurrence: EG)
  Receive Date: 20250429
  Receipt Date: 20250429
  Transmission Date: 20250717
  Serious: Yes (Other)
  Sender: ABBVIE
  Company Number: EG-ABBVIE-6154350

PATIENT
  Sex: Male

DRUGS (7)
  1. HUMIRA [Suspect]
     Active Substance: ADALIMUMAB
     Indication: Uveitis
     Dosage: 1 SYRINGE
     Route: 058
     Dates: start: 20240212
  2. CORTISONE [Concomitant]
     Active Substance: CORTISONE
     Indication: Uveitis
  3. CORTISONE [Concomitant]
     Active Substance: CORTISONE
     Indication: Uveitis
     Dosage: 1 TABLET; FORM STRENGTH: 5 MILLIGRAM; START DATE: AFTER HUMIRA
  4. Solupred [Concomitant]
     Indication: Product used for unknown indication
  5. CALCIUM [Concomitant]
     Active Substance: CALCIUM
     Indication: Product used for unknown indication
  6. Somadril [Concomitant]
     Indication: Product used for unknown indication
  7. IRON [Concomitant]
     Active Substance: IRON
     Indication: Product used for unknown indication

REACTIONS (4)
  - Blindness [Unknown]
  - Eye pain [Recovered/Resolved]
  - Therapeutic product effect decreased [Not Recovered/Not Resolved]
  - Eye disorder [Not Recovered/Not Resolved]

NARRATIVE: CASE EVENT DATE: 20240412
